FAERS Safety Report 17298357 (Version 3)
Quarter: 2020Q2

REPORT INFORMATION
  Report Type: Spontaneous
  Country: JP (occurrence: JP)
  Receive Date: 20200122
  Receipt Date: 20200415
  Transmission Date: 20200713
  Serious: Yes (Hospitalization)
  Sender: FDA-Public Use
  Company Number: NVSJ2020JP000592

PATIENT
  Age: 18 Year
  Sex: Female

DRUGS (2)
  1. EVEROLIMUS. [Suspect]
     Active Substance: EVEROLIMUS
     Indication: OSTEOSARCOMA
     Dosage: UNK
     Route: 048
  2. SORAFENIB [Concomitant]
     Active Substance: SORAFENIB
     Indication: METASTASES TO LUNG
     Dosage: UNK
     Route: 065

REACTIONS (2)
  - Cough [Recovering/Resolving]
  - Bronchial fistula [Recovering/Resolving]
